FAERS Safety Report 22016194 (Version 1)
Quarter: 2023Q1

REPORT INFORMATION
  Report Type: Spontaneous
  Country: US (occurrence: US)
  Receive Date: 20230221
  Receipt Date: 20230221
  Transmission Date: 20230418
  Serious: Yes (Life-Threatening, Hospitalization, Other)
  Sender: FDA-Public Use
  Company Number: US-PFIZER INC-PV202300031684

PATIENT

DRUGS (4)
  1. DAPTOMYCIN [Suspect]
     Active Substance: DAPTOMYCIN
     Indication: Infection
     Dosage: 29 DOSES
  2. PREDNISONE [Concomitant]
     Active Substance: PREDNISONE
     Indication: Retinal pigment epitheliopathy
     Dosage: 60 MG, DAILY
  3. PREDNISONE [Concomitant]
     Active Substance: PREDNISONE
     Dosage: DECREASING BY 10 MG, EVERY 4 DAYS UNTIL OFF
  4. MEROPENEM [Concomitant]
     Active Substance: MEROPENEM
     Indication: Infection
     Dosage: UNK

REACTIONS (1)
  - Eosinophilic pneumonia [Recovered/Resolved]
